FAERS Safety Report 7404882-0 (Version None)
Quarter: 2011Q2

REPORT INFORMATION
  Report Type: 
  Country: None (occurrence: None)
  Receive Date: 20110411
  Receipt Date: 20110331
  Transmission Date: 20111010
  Serious: Yes (Other)
  Sender: FDA-Public Use
  Company Number: JP-JNJFOC-20100908666

PATIENT
  Sex: Female
  Weight: 36 kg

DRUGS (19)
  1. DOXIL [Suspect]
     Dosage: CYCLE 4
     Route: 042
  2. HACHIAZULE [Concomitant]
     Indication: PROPHYLAXIS
     Route: 002
  3. NERIPROCT [Concomitant]
     Indication: HAEMORRHOIDS
     Route: 054
  4. KYTRIL [Concomitant]
     Route: 042
  5. KYTRIL [Concomitant]
     Route: 042
  6. CLARITIN [Concomitant]
     Indication: RHINITIS ALLERGIC
     Route: 048
  7. KYTRIL [Concomitant]
     Route: 042
  8. MAGLAX [Concomitant]
     Indication: CONSTIPATION
     Route: 048
  9. DOXIL [Suspect]
     Dosage: CYCLE 2
     Route: 042
  10. DOXIL [Suspect]
     Dosage: CYCLE 3
     Route: 042
  11. DAI-KENCHU-TO [Concomitant]
     Indication: CONSTIPATION
     Route: 048
  12. PRAVASTATIN [Concomitant]
     Indication: HYPERLIPIDAEMIA
     Route: 048
  13. NAUZELIN [Concomitant]
     Indication: PROPHYLAXIS
     Route: 048
  14. POSTERISAN F [Concomitant]
     Indication: HAEMORRHOIDS
     Route: 065
  15. DOXIL [Suspect]
     Dosage: CYCLE 5
     Route: 042
  16. DOXIL [Suspect]
     Dosage: CYCLE 6
     Route: 042
  17. KYTRIL [Concomitant]
     Indication: PROPHYLAXIS
     Route: 042
  18. DOXIL [Suspect]
     Indication: OVARIAN CANCER RECURRENT
     Dosage: CYCLE 1
     Route: 042
  19. ALLEGRA [Concomitant]
     Route: 048

REACTIONS (2)
  - DERMATITIS [None]
  - PALMAR-PLANTAR ERYTHRODYSAESTHESIA SYNDROME [None]
